FAERS Safety Report 8162462-6 (Version None)
Quarter: 2012Q1

REPORT INFORMATION
  Report Type: 
  Country: None (occurrence: None)
  Receive Date: 20120224
  Receipt Date: 20120213
  Transmission Date: 20120608
  Serious: Yes (Hospitalization)
  Sender: FDA-Public Use
  Company Number: FR-JNJFOC-20120211108

PATIENT
  Sex: Female

DRUGS (17)
  1. ACETAMINOPHEN AND TRAMADOL HCL [Suspect]
     Indication: BACK PAIN
     Route: 065
  2. ACETAMINOPHEN AND TRAMADOL HCL [Suspect]
     Dosage: 3 DAYS
     Route: 065
     Dates: start: 20111217, end: 20111219
  3. NEXIUM [Concomitant]
     Indication: PRODUCT USED FOR UNKNOWN INDICATION
     Route: 065
  4. MOXONIDINE [Concomitant]
     Indication: PRODUCT USED FOR UNKNOWN INDICATION
     Route: 065
  5. AMLODIPINE BESYLATE [Concomitant]
     Indication: PRODUCT USED FOR UNKNOWN INDICATION
     Route: 065
  6. TARKA [Concomitant]
     Indication: PRODUCT USED FOR UNKNOWN INDICATION
     Route: 065
  7. ACETAMINOPHEN [Interacting]
     Indication: ARTHRALGIA
     Route: 048
  8. ACETAMINOPHEN AND TRAMADOL HCL [Suspect]
     Indication: ARTHRALGIA
     Route: 065
  9. ACETAMINOPHEN [Interacting]
     Route: 048
     Dates: start: 20111217
  10. COVERAM [Concomitant]
     Indication: PRODUCT USED FOR UNKNOWN INDICATION
     Route: 065
  11. ACETAMINOPHEN [Interacting]
     Indication: BACK PAIN
     Route: 048
  12. PENTOXIFYLLINE [Interacting]
     Indication: PRODUCT USED FOR UNKNOWN INDICATION
     Route: 048
     Dates: start: 20090101, end: 20111219
  13. ACETAMINOPHEN AND TRAMADOL HCL [Suspect]
     Dosage: 3 DAYS
     Route: 065
     Dates: start: 20111217, end: 20111219
  14. ACETAMINOPHEN [Interacting]
     Route: 048
     Dates: start: 20111217
  15. XANAX [Concomitant]
     Indication: PRODUCT USED FOR UNKNOWN INDICATION
     Route: 065
  16. ATORVASTATIN [Concomitant]
     Indication: PRODUCT USED FOR UNKNOWN INDICATION
     Route: 065
  17. DITROPAN [Concomitant]
     Indication: PRODUCT USED FOR UNKNOWN INDICATION
     Route: 065

REACTIONS (7)
  - HYPONATRAEMIA [None]
  - URINARY RETENTION [None]
  - INTERNATIONAL NORMALISED RATIO INCREASED [None]
  - DRUG INTERACTION [None]
  - OVERDOSE [None]
  - ANAEMIA [None]
  - HAEMATOMA [None]
